FAERS Safety Report 17438037 (Version 1)
Quarter: 2020Q1

REPORT INFORMATION
  Report Type: Report from Study
  Country: None (occurrence: US)
  Receive Date: 20200220
  Receipt Date: 20200220
  Transmission Date: 20200409
  Serious: Yes (Other)
  Sender: FDA-Public Use
  Company Number: US-ABBVIE-20K-163-3258405-00

PATIENT
  Age: 80 Year
  Sex: Female

DRUGS (1)
  1. VENCLEXTA [Suspect]
     Active Substance: VENETOCLAX
     Indication: CHRONIC LYMPHOCYTIC LEUKAEMIA
     Route: 048
     Dates: start: 20200122

REACTIONS (7)
  - Gout [Unknown]
  - Loss of personal independence in daily activities [Recovering/Resolving]
  - Transfusion [Unknown]
  - Emotional distress [Recovered/Resolved]
  - Diarrhoea [Recovered/Resolved]
  - Emotional disorder [Unknown]
  - Platelet transfusion [Unknown]

NARRATIVE: CASE EVENT DATE: 202001
